FAERS Safety Report 5962270-8 (Version None)
Quarter: 2008Q4

REPORT INFORMATION
  Report Type: 
  Country: None (occurrence: None)
  Receive Date: 20081121
  Receipt Date: 20081118
  Transmission Date: 20090506
  Serious: Yes (Life-Threatening, Other)
  Sender: FDA-Public Use
  Company Number: GB-ROXANE LABORATORIES, INC.-2008-RO-00247RO

PATIENT
  Age: 3 Year
  Sex: Female

DRUGS (18)
  1. METHOTREXATE [Suspect]
     Indication: MEDULLOBLASTOMA
  2. METHOTREXATE [Suspect]
  3. CYCLOPHOSPHAMIDE [Suspect]
     Indication: MEDULLOBLASTOMA
  4. VINCRISTINE [Suspect]
     Indication: MEDULLOBLASTOMA
  5. CISPLATIN [Suspect]
     Indication: MEDULLOBLASTOMA
  6. ETOPOSIDE [Suspect]
     Indication: MEDULLOBLASTOMA
  7. ETOPOSIDE [Suspect]
     Route: 048
  8. HYDRATION [Suspect]
  9. TEMOZOLOMIDE [Suspect]
     Indication: MEDULLOBLASTOMA
     Route: 048
  10. CARBOXYPEPTIDASE G2 [Concomitant]
     Indication: DRUG CLEARANCE DECREASED
  11. MEROPENEM [Concomitant]
     Indication: SUPPORTIVE CARE
     Route: 042
  12. CIPROFLOXACIN [Concomitant]
     Indication: SUPPORTIVE CARE
  13. TEICOPLANIN [Concomitant]
     Indication: SUPPORTIVE CARE
  14. AMPHOTERICIN B [Concomitant]
     Indication: FEBRILE NEUTROPENIA
  15. DIURETICS [Concomitant]
     Indication: SUPPORTIVE CARE
  16. OXYGEN [Concomitant]
     Indication: SUPPORTIVE CARE
  17. TPN [Concomitant]
     Indication: SUPPORTIVE CARE
  18. ELECTROLYTE MANAGEMENT [Concomitant]
     Indication: SUPPORTIVE CARE

REACTIONS (2)
  - DRUG CLEARANCE DECREASED [None]
  - DRUG TOXICITY [None]
